FAERS Safety Report 20654669 (Version 3)
Quarter: 2022Q2

REPORT INFORMATION
  Report Type: Spontaneous
  Country: US (occurrence: US)
  Receive Date: 20220330
  Receipt Date: 20220627
  Transmission Date: 20220721
  Serious: Yes (Hospitalization)
  Sender: FDA-Public Use
  Company Number: US-MALLINCKRODT-T202201447

PATIENT
  Age: 62 Year
  Sex: Female

DRUGS (2)
  1. H.P. ACTHAR [Suspect]
     Active Substance: CORTICOTROPIN
     Indication: Systemic lupus erythematosus
     Dosage: 1 MILLILITER (80 UNITS), QW (ONCE A WEEK)
     Route: 058
     Dates: start: 202107
  2. H.P. ACTHAR [Suspect]
     Active Substance: CORTICOTROPIN
     Dosage: 1 MILLILITER (80 UNITS), QW (ONCE A WEEK)
     Route: 058

REACTIONS (4)
  - Arthropathy [Unknown]
  - Shoulder arthroplasty [Unknown]
  - Needle issue [Unknown]
  - Infection [Unknown]

NARRATIVE: CASE EVENT DATE: 20220318
